FAERS Safety Report 11501496 (Version 1)
Quarter: 2015Q3

REPORT INFORMATION
  Report Type: Spontaneous
  Country: US (occurrence: US)
  Receive Date: 20150914
  Receipt Date: 20150914
  Transmission Date: 20151125
  Serious: No
  Sender: FDA-Public Use
  Company Number: US-ENDO PHARMACEUTICALS INC.-2015-001852

PATIENT
  Age: 55 Year
  Sex: Male

DRUGS (2)
  1. AVEED [Suspect]
     Active Substance: TESTOSTERONE UNDECANOATE
     Indication: BLOOD TESTOSTERONE DECREASED
     Route: 030
     Dates: start: 20150219, end: 20150219
  2. AVEED [Suspect]
     Active Substance: TESTOSTERONE UNDECANOATE
     Route: 030
     Dates: start: 20150122, end: 20150122

REACTIONS (4)
  - Pyrexia [Unknown]
  - Injection site induration [Unknown]
  - Chills [Unknown]
  - Injection site swelling [Unknown]

NARRATIVE: CASE EVENT DATE: 20150305
